FAERS Safety Report 6420720 (Version 10)
Quarter: 2013Q4

REPORT INFORMATION
  Report Type: Spontaneous
  Country: US (occurrence: US)
  Receive Date: 20070919
  Receipt Date: 20131015
  Transmission Date: 20140711
  Serious: Yes (Other)
  Sender: FDA-Public Use
  Company Number: US-ASTRAZENECA-2007UW13292

PATIENT
  Age: 51 Year
  Sex: Female
  Weight: 63.5 kg

DRUGS (6)
  1. SEROQUEL [Suspect]
     Indication: BIPOLAR DISORDER
     Route: 048
     Dates: start: 2005
  2. SEROQUEL [Suspect]
     Indication: BIPOLAR DISORDER
     Route: 048
  3. SEROQUEL [Suspect]
     Indication: BIPOLAR DISORDER
     Route: 048
  4. SEROQUEL [Suspect]
     Indication: BIPOLAR DISORDER
     Route: 048
  5. ANOTHER MEDICATION [Suspect]
     Route: 065
  6. CLONAZEPAM [Concomitant]
     Indication: BIPOLAR DISORDER

REACTIONS (29)
  - Convulsion [Unknown]
  - Suicidal ideation [Unknown]
  - Drug dependence [Unknown]
  - Bipolar disorder [Unknown]
  - Rash generalised [Unknown]
  - Aphagia [Unknown]
  - Insomnia [Unknown]
  - Heart rate abnormal [Unknown]
  - Malaise [Not Recovered/Not Resolved]
  - Headache [Unknown]
  - Mood swings [Unknown]
  - Nausea [Unknown]
  - Lung disorder [Unknown]
  - Withdrawal syndrome [Unknown]
  - Fear [Unknown]
  - Confusional state [Not Recovered/Not Resolved]
  - Dyspnoea [Unknown]
  - Weight increased [Unknown]
  - Road traffic accident [Not Recovered/Not Resolved]
  - Gastric disorder [Not Recovered/Not Resolved]
  - Influenza like illness [Not Recovered/Not Resolved]
  - Pain [Not Recovered/Not Resolved]
  - Feeling abnormal [Not Recovered/Not Resolved]
  - Depression [Unknown]
  - Drug withdrawal syndrome [Unknown]
  - Mental impairment [Unknown]
  - Epistaxis [Unknown]
  - Intentional drug misuse [Not Recovered/Not Resolved]
  - Drug dose omission [Not Recovered/Not Resolved]
